FAERS Safety Report 9205921 (Version 1)
Quarter: 2013Q2

REPORT INFORMATION
  Report Type: Spontaneous
  Country: US (occurrence: US)
  Receive Date: 20130403
  Receipt Date: 20130403
  Transmission Date: 20140414
  Serious: No
  Sender: FDA-Public Use
  Company Number: US-009507513-1303USA014305

PATIENT
  Sex: 0

DRUGS (1)
  1. PREGNYL [Suspect]

REACTIONS (1)
  - Product formulation issue [Unknown]
